FAERS Safety Report 5531679-9 (Version None)
Quarter: 2007Q4

REPORT INFORMATION
  Report Type: 
  Country: None (occurrence: None)
  Receive Date: 20071128
  Receipt Date: 20071128
  Transmission Date: 20080405
  Serious: Yes (Hospitalization, Other)
  Sender: FDA-Public Use
  Company Number: None

PATIENT
  Sex: Male
  Weight: 90.7194 kg

DRUGS (2)
  1. KROGER NITETIME MULTI-SYMPTOM COLD/FLU RELIEF RED-CHERRY FLAVOR [Suspect]
     Indication: INFLUENZA
     Dosage: 1 TBSP ONCE
     Dates: start: 20071110
  2. KROGER NITETIME MULTI-SYMPTOM COLD/FLU RELIEF RED-CHERRY FLAVOR [Suspect]
     Indication: NASOPHARYNGITIS
     Dosage: 1 TBSP ONCE
     Dates: start: 20071110

REACTIONS (6)
  - ERYTHEMA [None]
  - LIP SWELLING [None]
  - PAIN [None]
  - PRURITUS [None]
  - SWELLING FACE [None]
  - URTICARIA [None]
